FAERS Safety Report 13697645 (Version 1)
Quarter: 2017Q2

REPORT INFORMATION
  Report Type: Spontaneous
  Country: JP (occurrence: JP)
  Receive Date: 20170628
  Receipt Date: 20170628
  Transmission Date: 20170830
  Serious: Yes (Other)
  Sender: FDA-Public Use
  Company Number: JP-JNJFOC-20170619465

PATIENT

DRUGS (1)
  1. INFLIXIMAB, RECOMBINANT [Suspect]
     Active Substance: INFLIXIMAB
     Indication: RHEUMATOID ARTHRITIS
     Route: 042

REACTIONS (6)
  - Pneumonia [Unknown]
  - Neoplasm malignant [Unknown]
  - Drug specific antibody present [Unknown]
  - Infusion related reaction [Unknown]
  - Sepsis [Unknown]
  - Treatment failure [Unknown]
